FAERS Safety Report 12327693 (Version 3)
Quarter: 2016Q3

REPORT INFORMATION
  Report Type: Report from Study
  Country: US (occurrence: US)
  Receive Date: 20160503
  Receipt Date: 20160913
  Transmission Date: 20161109
  Serious: Yes (Other)
  Sender: FDA-Public Use
  Company Number: US-ROCHE-1748632

PATIENT

DRUGS (2)
  1. TRASTUZUMAB EMTANSINE [Suspect]
     Active Substance: ADO-TRASTUZUMAB EMTANSINE
     Indication: HER-2 POSITIVE BREAST CANCER
     Dosage: ON DAY 1 EVERY 21 DAYS
     Route: 065
  2. ALPELISIB [Suspect]
     Active Substance: ALPELISIB
     Indication: HER-2 POSITIVE BREAST CANCER
     Dosage: COHORT 1: 300 MG, (-)1 250 MG
     Route: 065

REACTIONS (6)
  - Hypertension [Unknown]
  - Thrombocytopenia [Unknown]
  - Decreased appetite [Unknown]
  - Rash [Recovered/Resolved]
  - Lymphocyte count decreased [Unknown]
  - Hyperglycaemia [Recovered/Resolved]
